FAERS Safety Report 15603793 (Version 1)
Quarter: 2018Q4

REPORT INFORMATION
  Report Type: Spontaneous
  Country: PT (occurrence: ES)
  Receive Date: 20181109
  Receipt Date: 20181109
  Transmission Date: 20190205
  Serious: Yes (Other)
  Sender: FDA-Public Use
  Company Number: PT-SUNOVION-2018SUN004385

PATIENT

DRUGS (3)
  1. PERAMPANEL [Suspect]
     Active Substance: PERAMPANEL
     Indication: STATUS EPILEPTICUS
     Dosage: 12 MG, 1X / DAY
     Route: 048
     Dates: start: 20180820, end: 20180920
  2. METAMIZOL                          /06276702/ [Suspect]
     Active Substance: METAMIZOLE
     Indication: PAIN
     Dosage: 2 G, EVERY 8 HOURS
     Route: 042
     Dates: start: 20180918, end: 20180920
  3. ZEBINIX [Suspect]
     Active Substance: ESLICARBAZEPINE ACETATE
     Indication: STATUS EPILEPTICUS
     Dosage: 1600 MG, 1X / DAY
     Route: 042
     Dates: start: 20180827, end: 20180921

REACTIONS (4)
  - Overdose [Unknown]
  - Generalised erythema [Recovered/Resolved]
  - Pruritus [Recovered/Resolved]
  - Off label use [Unknown]

NARRATIVE: CASE EVENT DATE: 20180827
